FAERS Safety Report 16842875 (Version 1)
Quarter: 2019Q3

REPORT INFORMATION
  Report Type: Spontaneous
  Country: GB (occurrence: GB)
  Receive Date: 20190924
  Receipt Date: 20190924
  Transmission Date: 20191005
  Serious: Yes (Life-Threatening, Other)
  Sender: FDA-Public Use
  Company Number: GB-TEVA-2019-GB-1111056

PATIENT
  Age: 31 Year
  Sex: Female
  Weight: 83 kg

DRUGS (7)
  1. LAXIDO [Concomitant]
     Active Substance: POLYETHYLENE GLYCOL 3350\POTASSIUM CHLORIDE\SODIUM BICARBONATE\SODIUM CHLORIDE
     Dosage: USE AS DIRECTED
     Dates: start: 20181010, end: 20190806
  2. GOSERELIN [Concomitant]
     Active Substance: GOSERELIN
     Dosage: FOR ADMINISTRATION IN GP PRACTICE ONLY
     Dates: start: 20190805, end: 20190806
  3. SERTRALINE [Concomitant]
     Active Substance: SERTRALINE HYDROCHLORIDE
     Dosage: USE AS DIRECTED
     Dates: start: 20190528, end: 20190613
  4. VENLAFAXINE [Suspect]
     Active Substance: VENLAFAXINE HYDROCHLORIDE
     Dosage: 150 MG
     Dates: start: 20190828
  5. TIBOLONE [Concomitant]
     Active Substance: TIBOLONE
     Dosage: 1 DF
     Dates: start: 20190331
  6. NAPROXEN. [Concomitant]
     Active Substance: NAPROXEN
     Dosage: 2 DF
     Dates: start: 20190805
  7. ZOLADEX [Concomitant]
     Active Substance: GOSERELIN ACETATE
     Dosage: USE AS DIRECTED
     Dates: start: 20190704, end: 20190806

REACTIONS (1)
  - Anaphylactic reaction [Recovered/Resolved]
